FAERS Safety Report 6311197-0 (Version None)
Quarter: 2009Q3

REPORT INFORMATION
  Report Type: 
  Country: None (occurrence: None)
  Receive Date: 20090817
  Receipt Date: 20090813
  Transmission Date: 20100115
  Serious: No
  Sender: FDA-Public Use
  Company Number: US-B.I. PHARMACEUTICALS,INC./RIDGEFIELD-2009-BP-08740PF

PATIENT
  Sex: Female

DRUGS (15)
  1. SPIRIVA [Suspect]
     Indication: CHRONIC OBSTRUCTIVE PULMONARY DISEASE
     Dosage: 18 MCG
     Route: 055
     Dates: start: 20060101
  2. FUROSEMIDE [Concomitant]
  3. QUALAQUIN [Concomitant]
  4. SYRENGES [Concomitant]
  5. NASONEX [Concomitant]
  6. DIAZEPAM [Concomitant]
  7. LEVOXYL [Concomitant]
  8. SPIRONOLACTONE [Concomitant]
  9. NIASPAN [Concomitant]
  10. AMLODIPINE [Concomitant]
  11. HYDRALAZINE HCL [Concomitant]
  12. LOVASTATIN [Concomitant]
  13. GABAPENTIN [Concomitant]
  14. NOVLIN [Concomitant]
  15. RAMIPRIL [Concomitant]

REACTIONS (2)
  - INCREASED UPPER AIRWAY SECRETION [None]
  - WHEEZING [None]
